FAERS Safety Report 15551790 (Version 1)
Quarter: 2018Q4

REPORT INFORMATION
  Report Type: Spontaneous
  Country: US (occurrence: US)
  Receive Date: 20181025
  Receipt Date: 20181025
  Transmission Date: 20190205
  Serious: No
  Sender: FDA-Public Use
  Company Number: US-SUNOVION-2018SUN004018

PATIENT

DRUGS (1)
  1. LATUDA [Suspect]
     Active Substance: LURASIDONE HYDROCHLORIDE
     Dosage: UNK
     Route: 048

REACTIONS (8)
  - Vomiting [Unknown]
  - Overdose [Unknown]
  - Product dose omission [Unknown]
  - Heart rate irregular [Unknown]
  - Hypopnoea [Unknown]
  - Fear [Unknown]
  - Feeling abnormal [Unknown]
  - Off label use [Unknown]
